FAERS Safety Report 15809500 (Version 1)
Quarter: 2019Q1

REPORT INFORMATION
  Report Type: Spontaneous
  Country: PL (occurrence: PL)
  Receive Date: 20190111
  Receipt Date: 20190111
  Transmission Date: 20190417
  Serious: Yes (Other)
  Sender: FDA-Public Use
  Company Number: PL-ROCHE-2241429

PATIENT
  Age: 53 Year
  Sex: Male

DRUGS (5)
  1. METHOTREXATE. [Suspect]
     Active Substance: METHOTREXATE
     Indication: DERMATITIS ATOPIC
     Route: 062
  2. AZATHIOPRINE. [Suspect]
     Active Substance: AZATHIOPRINE
     Indication: DERMATITIS ATOPIC
     Route: 065
  3. ULTRAVIOLET B IRRADIATION [Concomitant]
     Indication: DERMATITIS ATOPIC
     Route: 065
  4. MYCOPHENOLATE MOFETIL. [Suspect]
     Active Substance: MYCOPHENOLATE MOFETIL
     Indication: DERMATITIS ATOPIC
     Route: 065
  5. CICLOSPORIN [Suspect]
     Active Substance: CYCLOSPORINE
     Indication: DERMATITIS ATOPIC
     Route: 065

REACTIONS (6)
  - Lymphocytosis [Recovering/Resolving]
  - Dermatitis exfoliative generalised [Recovering/Resolving]
  - Therapeutic response decreased [Unknown]
  - Mycosis fungoides [Recovering/Resolving]
  - Lymphadenopathy [Recovering/Resolving]
  - Skin lesion [Recovering/Resolving]
